FAERS Safety Report 16903885 (Version 2)
Quarter: 2019Q4

REPORT INFORMATION
  Report Type: Spontaneous
  Country: FR (occurrence: FR)
  Receive Date: 20191010
  Receipt Date: 20191203
  Transmission Date: 20200122
  Serious: Yes (Hospitalization, Other)
  Sender: FDA-Public Use
  Company Number: FR-AMGEN-FRASP2019166909

PATIENT
  Age: 42 Year
  Sex: Female
  Weight: 92 kg

DRUGS (2)
  1. ENBREL [Suspect]
     Active Substance: ETANERCEPT
     Indication: PRODUCT USED FOR UNKNOWN INDICATION
     Dosage: UNK
     Route: 065
     Dates: start: 2017
  2. HUMIRA [Suspect]
     Active Substance: ADALIMUMAB
     Indication: PSORIASIS
     Dosage: 40 MG, UNK
     Route: 058
     Dates: start: 201512, end: 20170416

REACTIONS (10)
  - PCO2 decreased [Unknown]
  - Abdominal pain upper [Unknown]
  - Blood albumin decreased [Unknown]
  - Pneumocystis jirovecii pneumonia [Recovering/Resolving]
  - CD4 lymphocytes decreased [Unknown]
  - Lung disorder [Recovering/Resolving]
  - Dyspnoea [Recovering/Resolving]
  - White blood cell count decreased [Unknown]
  - PO2 decreased [Unknown]
  - Therapeutic product effect incomplete [Unknown]

NARRATIVE: CASE EVENT DATE: 2017
